FAERS Safety Report 5119949-X (Version None)
Quarter: 2006Q3

REPORT INFORMATION
  Report Type: 
  Country: None (occurrence: None)
  Receive Date: 20060928
  Receipt Date: 20060919
  Transmission Date: 20061208
  Serious: Yes (Hospitalization)
  Sender: FDA-Public Use
  Company Number: HQWYE886319SEP06

PATIENT
  Age: 84 Year
  Sex: Female

DRUGS (11)
  1. CORDARONE [Suspect]
     Indication: VENTRICULAR EXTRASYSTOLES
     Dosage: 200 MG 1X PER 1 DAY ORAL; SEE IMAGE
     Route: 048
     Dates: start: 20020101, end: 20060724
  2. CORDARONE [Suspect]
     Indication: VENTRICULAR TACHYCARDIA
     Dosage: 200 MG 1X PER 1 DAY ORAL; SEE IMAGE
     Route: 048
     Dates: start: 20020101, end: 20060724
  3. CORDARONE [Suspect]
     Indication: VENTRICULAR EXTRASYSTOLES
     Dosage: 200 MG 1X PER 1 DAY ORAL; SEE IMAGE
     Route: 048
     Dates: start: 20060701
  4. CORDARONE [Suspect]
     Indication: VENTRICULAR TACHYCARDIA
     Dosage: 200 MG 1X PER 1 DAY ORAL; SEE IMAGE
     Route: 048
     Dates: start: 20060701
  5. CARVEDILOL [Suspect]
     Indication: SCINTIGRAPHY
     Dosage: 3.125 MG 2X PER 1 DAY ORAL; SEE IMAGE
     Route: 048
     Dates: start: 20060708, end: 20060721
  6. CARVEDILOL [Suspect]
     Indication: SCINTIGRAPHY
     Dosage: 3.125 MG 2X PER 1 DAY ORAL; SEE IMAGE
     Route: 048
     Dates: start: 20060722, end: 20060724
  7. SINTROM [Concomitant]
  8. ENALAPRIL MALEATE [Concomitant]
  9. NORVASC [Concomitant]
  10. OXAZEPAM [Concomitant]
  11. AMARYL [Concomitant]

REACTIONS (6)
  - ANGINA PECTORIS [None]
  - ASTHENIA [None]
  - BRADYCARDIA [None]
  - DRUG INTERACTION [None]
  - SYNCOPE [None]
  - TREATMENT NONCOMPLIANCE [None]
